FAERS Safety Report 12776873 (Version 2)
Quarter: 2016Q4

REPORT INFORMATION
  Report Type: Spontaneous
  Country: LV (occurrence: LV)
  Receive Date: 20160923
  Receipt Date: 20161003
  Transmission Date: 20170207
  Serious: Yes (Hospitalization, Other)
  Sender: FDA-Public Use
  Company Number: LV-SA-2016SA171959

PATIENT
  Age: 60 Year
  Sex: Female

DRUGS (11)
  1. ZOLPIDEM TARTRATE. [Suspect]
     Active Substance: ZOLPIDEM TARTRATE
     Indication: INSOMNIA
     Route: 048
  2. IBUPROFEN. [Suspect]
     Active Substance: IBUPROFEN
     Route: 048
  3. INTERFERON [Suspect]
     Active Substance: INTERFERON
     Indication: HEPATITIS C
     Route: 065
  4. PAROXETINE. [Suspect]
     Active Substance: PAROXETINE
     Route: 048
  5. NIMESULIDE [Suspect]
     Active Substance: NIMESULIDE
     Route: 048
  6. VIGANTOL [Suspect]
     Active Substance: CHOLECALCIFEROL
     Route: 065
  7. RIBAVIRIN. [Suspect]
     Active Substance: RIBAVIRIN
     Indication: HEPATITIS
     Route: 065
  8. MELDONIUM [Suspect]
     Active Substance: MELDONIUM
     Route: 048
  9. NEIROMIDIN [Suspect]
     Active Substance: IPIDACRINE
     Route: 048
  10. MELOXICAM. [Suspect]
     Active Substance: MELOXICAM
     Dosage: 15 MG/1.5 ML
     Route: 030
  11. MEDROL [Suspect]
     Active Substance: METHYLPREDNISOLONE
     Route: 048

REACTIONS (33)
  - Poisoning [Recovering/Resolving]
  - Burning sensation [Recovering/Resolving]
  - Electrocardiogram ST-T change [None]
  - Somnolence [Recovering/Resolving]
  - Pain [Recovering/Resolving]
  - Insomnia [None]
  - Altered state of consciousness [None]
  - Synovitis [None]
  - Cholelithiasis [None]
  - Cholelithiasis [Recovering/Resolving]
  - Ligament rupture [None]
  - Supraventricular extrasystoles [None]
  - Rash [Unknown]
  - Emotional disorder [None]
  - Tearfulness [None]
  - Palmar erythema [Recovering/Resolving]
  - Hepatomegaly [Recovering/Resolving]
  - Telangiectasia [Recovering/Resolving]
  - Small fibre neuropathy [Recovering/Resolving]
  - Osteoarthritis [None]
  - Drug-induced liver injury [Recovering/Resolving]
  - Petechiae [Recovering/Resolving]
  - Hepatic failure [Recovering/Resolving]
  - Polyneuropathy [Recovering/Resolving]
  - Paraesthesia [Recovering/Resolving]
  - Jaundice [Recovering/Resolving]
  - Haemorrhage subcutaneous [Recovering/Resolving]
  - Oedema peripheral [Recovering/Resolving]
  - Coagulopathy [Recovering/Resolving]
  - Condition aggravated [Recovering/Resolving]
  - Drug ineffective [None]
  - Ligament sprain [None]
  - Gait disturbance [None]
